FAERS Safety Report 6114885-4 (Version None)
Quarter: 2009Q1

REPORT INFORMATION
  Report Type: 
  Country: None (occurrence: None)
  Receive Date: 20090313
  Receipt Date: 20090304
  Transmission Date: 20090719
  Serious: No
  Sender: FDA-Public Use
  Company Number: PHHY2009FR07553

PATIENT
  Age: 83 Year
  Sex: Female

DRUGS (1)
  1. ACLASTA [Suspect]
     Dosage: UNK
     Dates: start: 20090210

REACTIONS (4)
  - CHILLS [None]
  - EYE PAIN [None]
  - NAUSEA [None]
  - VOMITING [None]
